FAERS Safety Report 9144407 (Version 1)
Quarter: 2013Q1

REPORT INFORMATION
  Report Type: Spontaneous
  Country: US (occurrence: US)
  Receive Date: 20130306
  Receipt Date: 20130306
  Transmission Date: 20140127
  Serious: No
  Sender: FDA-Public Use
  Company Number: US-ASTRAZENECA-2013SE10282

PATIENT
  Age: 63 Year
  Sex: Female
  Weight: 77.1 kg

DRUGS (13)
  1. ATENOLOL [Suspect]
     Route: 065
  2. LISINOPRIL [Suspect]
     Route: 048
  3. TOPROL XL [Suspect]
     Indication: HYPERTENSION
     Route: 048
  4. TOPROL XL [Suspect]
     Indication: HYPERTENSION
     Route: 048
  5. TOPROL XL [Suspect]
     Indication: HYPERTENSION
     Route: 048
  6. CRESTOR [Suspect]
     Route: 048
  7. LANSOPRAZOLE [Concomitant]
  8. ASICOL [Concomitant]
  9. 5 FOLIC ACID [Concomitant]
  10. PLAVIX [Concomitant]
  11. ECTORIN [Concomitant]
  12. VIT D [Concomitant]
  13. ALPHALAPOEIC ACID [Concomitant]

REACTIONS (10)
  - Arthralgia [Not Recovered/Not Resolved]
  - Pain in extremity [Not Recovered/Not Resolved]
  - Muscle atrophy [Unknown]
  - Blood pressure increased [Unknown]
  - Depression [Not Recovered/Not Resolved]
  - Memory impairment [Not Recovered/Not Resolved]
  - Drug hypersensitivity [Unknown]
  - Drug ineffective [Unknown]
  - Off label use [Unknown]
  - Intentional drug misuse [Unknown]
